FAERS Safety Report 8471626-3 (Version None)
Quarter: 2012Q2

REPORT INFORMATION
  Report Type: 
  Country: None (occurrence: None)
  Receive Date: 20120627
  Receipt Date: 20120619
  Transmission Date: 20120825
  Serious: Yes (Death, Other)
  Sender: FDA-Public Use
  Company Number: JP-ROCHE-763898

PATIENT
  Sex: Male
  Weight: 61 kg

DRUGS (14)
  1. FRANDOL S [Concomitant]
     Indication: ANGINA PECTORIS
     Dates: start: 20100112, end: 20110321
  2. XELODA [Suspect]
     Indication: COLON CANCER METASTATIC
     Dosage: IT IS ONE ADMINISTEARING WEEKLY HOLIDAY MEDICINE FOR TWO WEEKS
     Route: 048
     Dates: start: 20100121, end: 20110201
  3. DECADRON [Concomitant]
     Indication: PROPHYLAXIS OF NAUSEA AND VOMITING
     Route: 041
     Dates: start: 20100112, end: 20110201
  4. PYDOXAL [Concomitant]
     Indication: PROPHYLAXIS
     Route: 048
     Dates: start: 20100112, end: 20110304
  5. CALCIUM CARBONATE [Concomitant]
     Indication: PROPHYLAXIS
     Route: 041
     Dates: start: 20100112, end: 20110201
  6. OLMETEC [Concomitant]
     Indication: BLOOD PRESSURE MANAGEMENT
     Route: 048
     Dates: start: 20100112, end: 20110303
  7. GASMOTIN [Concomitant]
     Indication: GASTRITIS
     Dates: start: 20100112, end: 20110303
  8. GRANISETRON [Concomitant]
     Indication: POST PROCEDURAL HAEMORRHAGE
     Route: 041
     Dates: start: 20100112, end: 20110201
  9. MAGNESIUM SULFATE [Concomitant]
     Indication: PROPHYLAXIS
     Dates: start: 20100112, end: 20110201
  10. AMLODIPINE [Concomitant]
     Indication: BLOOD PRESSURE MANAGEMENT
     Route: 048
     Dates: start: 20100121, end: 20110303
  11. MAGMITT [Concomitant]
     Indication: CONSTIPATION PROPHYLAXIS
     Route: 048
     Dates: start: 20100112, end: 20110303
  12. OXALIPLATIN [Suspect]
     Indication: COLON CANCER METASTATIC
     Dates: start: 20100121, end: 20110201
  13. OXYCONTIN [Concomitant]
     Indication: PAIN MANAGEMENT
     Route: 048
     Dates: start: 20100112, end: 20110320
  14. RHYTHMY [Concomitant]
     Indication: INSOMNIA
     Dates: start: 20110112, end: 20110309

REACTIONS (7)
  - PNEUMONIA CYTOMEGALOVIRAL [None]
  - DISEASE PROGRESSION [None]
  - INTERSTITIAL LUNG DISEASE [None]
  - PNEUMOCYSTIS JIROVECI PNEUMONIA [None]
  - PLEURAL EFFUSION [None]
  - IMMUNODEFICIENCY [None]
  - LIVER DISORDER [None]
